FAERS Safety Report 4973370-3 (Version None)
Quarter: 2006Q2

REPORT INFORMATION
  Report Type: 
  Country: None (occurrence: None)
  Receive Date: 20060414
  Receipt Date: 20041122
  Transmission Date: 20061013
  Serious: Yes (Other)
  Sender: FDA-Public Use
  Company Number: TH-2004-BP-12192BP

PATIENT
  Sex: Male
  Weight: 55 kg

DRUGS (10)
  1. MICARDIS [Suspect]
     Indication: CARDIOVASCULAR DISORDER
     Route: 048
     Dates: start: 20020808, end: 20041122
  2. MICARDIS [Suspect]
     Indication: CEREBROVASCULAR ACCIDENT PROPHYLAXIS
  3. RAMIPRIL [Suspect]
     Indication: CARDIOVASCULAR DISORDER
     Route: 048
     Dates: start: 20020808, end: 20041111
  4. RAMIPRIL [Suspect]
     Indication: CEREBROVASCULAR ACCIDENT PROPHYLAXIS
  5. BETALOC [Concomitant]
  6. ASPIRIN [Concomitant]
  7. DIURETIC [Concomitant]
  8. NITRATES [Concomitant]
  9. STATIN [Concomitant]
  10. VITAMIN B1, 6 + 12 [Concomitant]

REACTIONS (4)
  - ASTHENIA [None]
  - BLOOD POTASSIUM INCREASED [None]
  - DYSGEUSIA [None]
  - RENAL IMPAIRMENT [None]
